FAERS Safety Report 11089284 (Version 1)
Quarter: 2015Q2

REPORT INFORMATION
  Report Type: Other
  Country: JP (occurrence: JP)
  Receive Date: 20150505
  Receipt Date: 20150505
  Transmission Date: 20150821
  Serious: Yes (Death)
  Sender: FDA-Public Use
  Company Number: JP-LUPIN PHARMACEUTICALS INC.-2015-01070

PATIENT
  Sex: Female
  Weight: 58.1 kg

DRUGS (1)
  1. DROSPIRENONE 3MG /ETHINYLESTRADIOL 20MICROG [Suspect]
     Active Substance: DROSPIRENONE\ETHINYL ESTRADIOL
     Indication: DYSMENORRHOEA
     Route: 065

REACTIONS (2)
  - Pulmonary embolism [None]
  - Petechiae [None]
